FAERS Safety Report 10746133 (Version 1)
Quarter: 2015Q1

REPORT INFORMATION
  Report Type: Spontaneous
  Country: AU (occurrence: AU)
  Receive Date: 20150128
  Receipt Date: 20150128
  Transmission Date: 20150721
  Serious: Yes (Other)
  Sender: FDA-Public Use
  Company Number: AU-ABBVIE-15P-008-1335924-00

PATIENT

DRUGS (1)
  1. LUCRIN [Suspect]
     Active Substance: LEUPROLIDE ACETATE
     Indication: PRODUCT USED FOR UNKNOWN INDICATION
     Dosage: INTERMITTENT THERAPY
     Route: 065
     Dates: start: 20130408, end: 20141205

REACTIONS (2)
  - Cardiac pacemaker insertion [Unknown]
  - Diagnostic procedure [Recovered/Resolved]
